FAERS Safety Report 8913002 (Version 1)
Quarter: 2012Q4

REPORT INFORMATION
  Report Type: Spontaneous
  Country: US (occurrence: None)
  Receive Date: 20121114
  Receipt Date: 20121114
  Transmission Date: 20130627
  Serious: Yes (Other)
  Sender: FDA-Public Use
  Company Number: None

PATIENT
  Age: 33 Year
  Sex: Female
  Weight: 45.36 kg

DRUGS (1)
  1. NITROFURANTOIN [Suspect]
     Indication: URINARY TRACT INFECTION
     Route: 048

REACTIONS (12)
  - Dyspepsia [None]
  - Eructation [None]
  - Gastrooesophageal reflux disease [None]
  - Retching [None]
  - Headache [None]
  - Somnolence [None]
  - Vision blurred [None]
  - Impaired work ability [None]
  - Somnolence [None]
  - Fatigue [None]
  - Feeling abnormal [None]
  - Photopsia [None]
